FAERS Safety Report 6767664-9 (Version None)
Quarter: 2010Q2

REPORT INFORMATION
  Report Type: 
  Country: None (occurrence: None)
  Receive Date: 20100614
  Receipt Date: 20100601
  Transmission Date: 20101027
  Serious: Yes (Hospitalization, Other)
  Sender: FDA-Public Use
  Company Number: US-ELI_LILLY_AND_COMPANY-US201006001651

PATIENT
  Sex: Male

DRUGS (22)
  1. FORTEO [Suspect]
     Indication: OSTEOPOROSIS
     Dosage: 20 UG, DAILY (1/D)
  2. FORTEO [Suspect]
     Dosage: 20 UG, DAILY (1/D)
     Dates: start: 20100505, end: 20100601
  3. GLIPIZIDE [Concomitant]
     Dosage: 5 MG, DAILY (1/D)
  4. ATENOLOL [Concomitant]
     Dosage: 50 MG, DAILY (1/D)
  5. IMDUR [Concomitant]
     Dosage: 120 MG, DAILY (1/D)
  6. RAMIPRIL [Concomitant]
     Dosage: 10 MG, DAILY (1/D)
  7. NORVASC [Concomitant]
     Dosage: 10 MG, DAILY (1/D)
  8. SYNTHROID [Concomitant]
     Dosage: 75 MG, DAILY (1/D)
  9. ASPIRIN [Concomitant]
     Dosage: 81 MG, DAILY (1/D)
  10. LOPERAMIDE [Concomitant]
     Dosage: 10 MG, DAILY (1/D)
  11. PLAVIX [Concomitant]
     Dosage: 75 MG, DAILY (1/D)
  12. FASAX [Concomitant]
     Dosage: 325 MG, DAILY (1/D)
  13. LIDODERM [Concomitant]
  14. VITAMIN B-12 [Concomitant]
     Dosage: UNK, DAILY (1/D)
  15. FIBER-LAX [Concomitant]
     Dosage: 3 D/F, DAILY (1/D)
  16. METAMUCIL-2 [Concomitant]
     Dosage: 2 D/F, DAILY (1/D)
  17. CALCIUM CARBONATE [Concomitant]
     Dosage: 600 MG, DAILY (1/D)
  18. TYLENOL (CAPLET) [Concomitant]
     Dosage: 2 D/F, EACH MORNING
  19. TYLENOL (CAPLET) [Concomitant]
     Dosage: 2 D/F, EACH EVENING
  20. HYDROCODONE [Concomitant]
     Dosage: UNK, DAILY (1/D)
  21. LACTULOSE [Concomitant]
     Dosage: 30 MG, DAILY (1/D)
  22. LORTAB [Concomitant]

REACTIONS (7)
  - COLON OPERATION [None]
  - CONSTIPATION [None]
  - INTENTIONAL DRUG MISUSE [None]
  - MEDICATION ERROR [None]
  - MOVEMENT DISORDER [None]
  - MUSCLE STRAIN [None]
  - PAIN IN EXTREMITY [None]
